FAERS Safety Report 6578154-0 (Version None)
Quarter: 2010Q1

REPORT INFORMATION
  Report Type: 
  Country: None (occurrence: None)
  Receive Date: 20100211
  Receipt Date: 20100202
  Transmission Date: 20100710
  Serious: Yes (Other)
  Sender: FDA-Public Use
  Company Number: US-PFIZER INC-2010016419

PATIENT
  Sex: Male
  Weight: 90.703 kg

DRUGS (1)
  1. NICOTROL [Suspect]
     Dosage: UNK

REACTIONS (5)
  - MOUTH INJURY [None]
  - NERVE ROOT INJURY [None]
  - PAIN [None]
  - TOOTH FRACTURE [None]
  - TOOTH LOSS [None]
